FAERS Safety Report 4358812-9 (Version None)
Quarter: 2004Q2

REPORT INFORMATION
  Report Type: 
  Country: None (occurrence: None)
  Receive Date: 20040511
  Receipt Date: 20040426
  Transmission Date: 20050107
  Serious: Yes (Other)
  Sender: FDA-Public Use
  Company Number: 986

PATIENT
  Age: 39 Year
  Sex: Female
  Weight: 108.8633 kg

DRUGS (5)
  1. AMNESTEEM [Suspect]
     Indication: ACNE
     Dosage: 40 MG PO OD
     Route: 048
  2. SEROQUEL [Concomitant]
  3. LAVOXYL [Concomitant]
  4. RISPERDAL [Concomitant]
  5. LAMECTIL [Concomitant]

REACTIONS (2)
  - CHEMICAL BURN OF SKIN [None]
  - SCAR [None]
